FAERS Safety Report 13540526 (Version 2)
Quarter: 2018Q2

REPORT INFORMATION
  Report Type: Spontaneous
  Country: FR (occurrence: FR)
  Receive Date: 20170512
  Receipt Date: 20180524
  Transmission Date: 20180711
  Serious: Yes (Hospitalization)
  Sender: FDA-Public Use
  Company Number: FR-PFIZER INC-2017200124

PATIENT
  Age: 26 Year
  Sex: Female
  Weight: 68 kg

DRUGS (80)
  1. DEPO-MEDROL [Concomitant]
     Active Substance: METHYLPREDNISOLONE ACETATE
     Dosage: 40 MG, CYCLIC
     Dates: start: 20170121, end: 20170121
  2. DOXORUBICIN HYDROCHLORIDE. [Concomitant]
     Active Substance: DOXORUBICIN HYDROCHLORIDE
     Indication: BURKITT^S LYMPHOMA STAGE IV
     Dosage: 60 MG/M2, CYCLIC
     Dates: start: 20170121, end: 20170121
  3. CORTANCYL [Concomitant]
     Active Substance: PREDNISONE
     Indication: PROPHYLAXIS AGAINST TRANSPLANT REJECTION
     Dosage: 5 MG, 1X/DAY
     Route: 048
     Dates: start: 20170413
  4. MABTHERA [Concomitant]
     Active Substance: RITUXIMAB
     Dosage: 375 MG/M2, CYCLIC
     Dates: start: 20170125, end: 20170125
  5. DAPTOMYCIN. [Concomitant]
     Active Substance: DAPTOMYCIN
     Indication: BACTERIAL PYELONEPHRITIS
     Dosage: UNK
     Dates: start: 20170130, end: 20170213
  6. ZAVICEFTA [Concomitant]
     Active Substance: AVIBACTAM SODIUM\CEFTAZIDIME
     Dosage: UNK
     Dates: start: 20170224, end: 20170309
  7. SOLU-MEDROL [Suspect]
     Active Substance: METHYLPREDNISOLONE SODIUM SUCCINATE
     Dosage: 60 MG/M2, CYCLIC
     Dates: start: 20170210, end: 20170210
  8. SOLU-MEDROL [Suspect]
     Active Substance: METHYLPREDNISOLONE SODIUM SUCCINATE
     Dosage: 40 MG/M2, CYCLIC
     Dates: start: 20170214, end: 20170214
  9. VINCRISTINE SULFATE. [Suspect]
     Active Substance: VINCRISTINE SULFATE
     Dosage: 1.4 MG/M2, CYCLIC
     Route: 041
     Dates: start: 20170120, end: 20170120
  10. VINCRISTINE SULFATE. [Suspect]
     Active Substance: VINCRISTINE SULFATE
     Dosage: 1.4 MG/M2, CYCLIC
     Route: 041
     Dates: start: 20170210, end: 20170210
  11. ETOPOSIDE MYLAN [Suspect]
     Active Substance: ETOPOSIDE
     Dosage: 200 MG/M2, CYCLIC
     Route: 041
     Dates: start: 20170408, end: 20170408
  12. CYTARABINE SANDOZ [Suspect]
     Active Substance: CYTARABINE
     Dosage: 3000 MG/M2, CYCLIC
     Route: 041
     Dates: start: 20170307, end: 20170307
  13. ARACYTINE [Concomitant]
     Active Substance: CYTARABINE
     Indication: BURKITT^S LYMPHOMA STAGE IV
     Dosage: 40 MG, DAILY
     Route: 037
     Dates: start: 20170111, end: 20170111
  14. ARACYTINE [Concomitant]
     Active Substance: CYTARABINE
     Dosage: 40 MG, DAILY
     Route: 037
     Dates: start: 20170215, end: 20170215
  15. DEPO-MEDROL [Concomitant]
     Active Substance: METHYLPREDNISOLONE ACETATE
     Indication: BURKITT^S LYMPHOMA STAGE IV
     Dosage: UNK
     Dates: start: 20170111, end: 20170111
  16. METHOTREXATE. [Concomitant]
     Active Substance: METHOTREXATE
     Dosage: UNK
     Dates: start: 20170115, end: 20170115
  17. METHOTREXATE. [Concomitant]
     Active Substance: METHOTREXATE
     Dosage: 3 G/M2
     Dates: start: 20170210, end: 20170210
  18. METHOTREXATE. [Concomitant]
     Active Substance: METHOTREXATE
     Dosage: 15 MG, CYCLIC
     Route: 037
     Dates: start: 20170211, end: 20170211
  19. METHOTREXATE. [Concomitant]
     Active Substance: METHOTREXATE
     Dosage: 15 MG, CYCLIC
     Route: 037
     Dates: start: 20170215, end: 20170215
  20. IMUREL [Concomitant]
     Active Substance: AZATHIOPRINE SODIUM
     Indication: PROPHYLAXIS AGAINST TRANSPLANT REJECTION
     Dosage: 50 MG, 1X/DAY
     Route: 048
     Dates: start: 20160704, end: 20170106
  21. CYCLOPHOSPHAMIDE. [Concomitant]
     Active Substance: CYCLOPHOSPHAMIDE
     Indication: BURKITT^S LYMPHOMA STAGE IV
     Dosage: UNK
     Dates: start: 20170111, end: 20170111
  22. CYCLOPHOSPHAMIDE. [Concomitant]
     Active Substance: CYCLOPHOSPHAMIDE
     Dosage: 100 MG/M2, CYCLIC
     Dates: start: 20170211, end: 20170211
  23. AMIKACIN. [Concomitant]
     Active Substance: AMIKACIN
     Indication: BACTERIAL PYELONEPHRITIS
     Dosage: UNK
     Dates: start: 20170213, end: 20170224
  24. SOLUPRED [Concomitant]
     Dosage: 60 MG/M2, CYCLIC
     Dates: start: 20170120, end: 20170120
  25. MABTHERA [Concomitant]
     Active Substance: RITUXIMAB
     Indication: BURKITT^S LYMPHOMA STAGE IV
     Dosage: 375 MG/M2, CYCLIC
     Dates: start: 20170119, end: 20170119
  26. MABTHERA [Concomitant]
     Active Substance: RITUXIMAB
     Dosage: 375 MG/M2, CYCLIC
     Dates: start: 20170209, end: 20170209
  27. MABTHERA [Concomitant]
     Active Substance: RITUXIMAB
     Dosage: 375 MG/M2, CYCLIC
     Dates: start: 20170215, end: 20170215
  28. SOLUPRED [Concomitant]
     Dosage: 60 MG/M2, CYCLIC
     Dates: start: 20170124, end: 20170124
  29. DIFFU K [Concomitant]
     Active Substance: POTASSIUM CHLORIDE
  30. SOLU-MEDROL [Suspect]
     Active Substance: METHYLPREDNISOLONE SODIUM SUCCINATE
     Indication: BURKITT^S LYMPHOMA STAGE IV
     Dosage: 40 MG, UNK
     Dates: start: 20170120, end: 20170120
  31. SOLU-MEDROL [Suspect]
     Active Substance: METHYLPREDNISOLONE SODIUM SUCCINATE
     Dosage: 0.50 MG/KG, CYCLIC
     Route: 041
     Dates: start: 20170307, end: 20170307
  32. VINCRISTINE SULFATE. [Suspect]
     Active Substance: VINCRISTINE SULFATE
     Indication: BURKITT^S LYMPHOMA STAGE IV
     Dosage: UNK
     Route: 041
     Dates: start: 20170111, end: 20170111
  33. VINCRISTINE SULFATE. [Suspect]
     Active Substance: VINCRISTINE SULFATE
     Dosage: 1.4 MG/M2, CYCLIC
     Route: 041
     Dates: start: 20170215, end: 20170215
  34. ETOPOSIDE MYLAN [Suspect]
     Active Substance: ETOPOSIDE
     Dosage: 200 MG/M2, CYCLIC
     Route: 041
     Dates: start: 20170411, end: 20170411
  35. INEXIUM [Concomitant]
     Active Substance: ESOMEPRAZOLE
     Dosage: UNK
  36. SOLUPRED [Concomitant]
     Indication: BURKITT^S LYMPHOMA STAGE IV
     Dosage: 60 MG/M2, CYCLIC
     Dates: start: 20170111, end: 20170111
  37. ETOPOSIDE MYLAN [Suspect]
     Active Substance: ETOPOSIDE
     Dosage: 200 MG/M2, CYCLIC
     Route: 041
     Dates: start: 20170310, end: 20170310
  38. CYTARABINE SANDOZ [Suspect]
     Active Substance: CYTARABINE
     Dosage: 50 MG/M2, CYCLIC
     Route: 041
     Dates: start: 20170411, end: 20170411
  39. ARACYTINE [Concomitant]
     Active Substance: CYTARABINE
     Dosage: 40 MG, DAILY
     Route: 037
     Dates: start: 20170115, end: 20170115
  40. DEPO-MEDROL [Concomitant]
     Active Substance: METHYLPREDNISOLONE ACETATE
     Dosage: 40 MG, CYCLIC
     Dates: start: 20170125, end: 20170125
  41. METHOTREXATE. [Concomitant]
     Active Substance: METHOTREXATE
     Dosage: 15 MG, CYCLIC
     Route: 037
     Dates: start: 20170125, end: 20170125
  42. SPECIAFOLDINE [Concomitant]
     Active Substance: FOLIC ACID
  43. CYCLOPHOSPHAMIDE. [Concomitant]
     Active Substance: CYCLOPHOSPHAMIDE
     Dosage: 100 MG/M2, CYCLIC
     Dates: start: 20170213, end: 20170213
  44. FORTUM [Concomitant]
     Active Substance: CEFTAZIDIME
     Indication: BACTERIAL PYELONEPHRITIS
     Dosage: UNK
     Dates: start: 20170130, end: 20170213
  45. ZARZIO [Concomitant]
     Active Substance: FILGRASTIM
     Indication: FEBRILE BONE MARROW APLASIA
     Dosage: UNK
     Dates: start: 20170316
  46. CACIT [Concomitant]
     Active Substance: CALCIUM\VITAMIN D
  47. SOLU-MEDROL [Suspect]
     Active Substance: METHYLPREDNISOLONE SODIUM SUCCINATE
     Dosage: 40 MG, UNK
     Dates: start: 20170124, end: 20170124
  48. DEPO-MEDROL [Concomitant]
     Active Substance: METHYLPREDNISOLONE ACETATE
     Dosage: UNK
     Dates: start: 20170115, end: 20170115
  49. DOXORUBICIN HYDROCHLORIDE. [Concomitant]
     Active Substance: DOXORUBICIN HYDROCHLORIDE
     Dosage: 60 MG/M2, CYCLIC
     Dates: start: 20170211, end: 20170211
  50. FORTUM [Concomitant]
     Active Substance: CEFTAZIDIME
     Dosage: UNK
     Dates: start: 20170224, end: 20170309
  51. CEFTAZIDIME. [Concomitant]
     Active Substance: CEFTAZIDIME
     Indication: BACTERIAL PYELONEPHRITIS
     Dosage: UNK
     Dates: start: 20170224, end: 20170309
  52. HYDROCORTISONE HEMISUCCINATE [Concomitant]
     Active Substance: HYDROCORTISONE HEMISUCCINATE
     Dosage: 25 MG, CYCLIC
     Dates: start: 20170211, end: 20170211
  53. SOLU-MEDROL [Suspect]
     Active Substance: METHYLPREDNISOLONE SODIUM SUCCINATE
     Dosage: 40 MG/M2, CYCLIC
     Route: 017
     Dates: start: 20170209, end: 20170209
  54. SOLU-MEDROL [Suspect]
     Active Substance: METHYLPREDNISOLONE SODIUM SUCCINATE
     Dosage: 60 MG/M2, CYCLIC
     Dates: start: 20170214, end: 20170214
  55. SOLU-MEDROL [Suspect]
     Active Substance: METHYLPREDNISOLONE SODIUM SUCCINATE
     Dosage: 0.50 MG/KG, CYCLIC
     Route: 041
     Dates: start: 20170411, end: 20170411
  56. FLAGYL [Suspect]
     Active Substance: METRONIDAZOLE\METRONIDAZOLE HYDROCHLORIDE
     Indication: ESCHERICHIA PYELONEPHRITIS
     Dosage: UNK
     Route: 041
     Dates: start: 20170213, end: 20170224
  57. CYTARABINE SANDOZ [Suspect]
     Active Substance: CYTARABINE
     Dosage: 3000 MG/M2, CYCLIC (DAY 2 AND DAY 5)
     Route: 041
     Dates: start: 20170408, end: 20170408
  58. ARACYTINE [Concomitant]
     Active Substance: CYTARABINE
     Dosage: 40 MG, DAILY
     Route: 037
     Dates: start: 20170125, end: 20170125
  59. ARACYTINE [Concomitant]
     Active Substance: CYTARABINE
     Dosage: 40 MG, DAILY
     Route: 037
     Dates: start: 20170211, end: 20170211
  60. METHOTREXATE. [Concomitant]
     Active Substance: METHOTREXATE
     Dosage: UNK
     Dates: start: 20170111, end: 20170111
  61. METHOTREXATE. [Concomitant]
     Active Substance: METHOTREXATE
     Dosage: 15 MG, CYCLIC
     Route: 037
     Dates: start: 20170121, end: 20170121
  62. FLAGYL [Suspect]
     Active Substance: METRONIDAZOLE\METRONIDAZOLE HYDROCHLORIDE
     Dosage: UNK
     Route: 041
     Dates: start: 20170316, end: 20170322
  63. ETOPOSIDE MYLAN [Suspect]
     Active Substance: ETOPOSIDE
     Indication: BURKITT^S LYMPHOMA STAGE IV
     Dosage: 200 MG/M2, CYCLIC
     Route: 041
     Dates: start: 20170307, end: 20170307
  64. CYTARABINE SANDOZ [Suspect]
     Active Substance: CYTARABINE
     Dosage: 3000 MG/M2, CYCLIC
     Route: 041
     Dates: start: 20170310, end: 20170310
  65. CYTARABINE SANDOZ [Suspect]
     Active Substance: CYTARABINE
     Dosage: 50 MG/M2, CYCLIC
     Route: 041
     Dates: start: 20170407, end: 20170407
  66. ARACYTINE [Concomitant]
     Active Substance: CYTARABINE
     Dosage: 40 MG, DAILY
     Route: 037
     Dates: start: 20170121, end: 20170121
  67. METHOTREXATE. [Concomitant]
     Active Substance: METHOTREXATE
     Dosage: 3 G/M2
     Dates: start: 20170120, end: 20170120
  68. TAZOCILLINE [Concomitant]
     Active Substance: PIPERACILLIN SODIUM\TAZOBACTAM SODIUM
     Indication: BACTERIAL PYELONEPHRITIS
     Dosage: UNK
     Dates: start: 20170127, end: 20170130
  69. PROGRAF [Concomitant]
     Active Substance: TACROLIMUS\TACROLIMUS ANHYDROUS
     Indication: PROPHYLAXIS AGAINST TRANSPLANT REJECTION
     Dosage: 1 MG, 2X/DAY
     Route: 048
     Dates: start: 20160413, end: 20170115
  70. CYCLOPHOSPHAMIDE. [Concomitant]
     Active Substance: CYCLOPHOSPHAMIDE
     Dosage: 500 MG/M2, CYCLIC
     Dates: start: 20170121, end: 20170121
  71. CYCLOPHOSPHAMIDE. [Concomitant]
     Active Substance: CYCLOPHOSPHAMIDE
     Dosage: 500 MG/M2, CYCLIC
     Dates: start: 20170123, end: 20170123
  72. LUTENYL [Concomitant]
     Active Substance: NOMEGESTROL ACETATE
  73. MERONEM [Concomitant]
     Active Substance: MEROPENEM
     Indication: BACTERIAL PYELONEPHRITIS
     Dosage: UNK
     Dates: start: 20170213, end: 20170224
  74. SOLUPRED [Concomitant]
     Dosage: 60 MG/M2, CYCLIC
     Dates: start: 20170117, end: 20170117
  75. HYDROCORTISONE HEMISUCCINATE [Concomitant]
     Active Substance: HYDROCORTISONE HEMISUCCINATE
     Dosage: 25 MG, CYCLIC
     Dates: start: 20170215, end: 20170215
  76. SOLU-MEDROL [Suspect]
     Active Substance: METHYLPREDNISOLONE SODIUM SUCCINATE
     Dosage: 0.50 MG/KG, CYCLIC
     Route: 041
     Dates: start: 20170310, end: 20170310
  77. SOLU-MEDROL [Suspect]
     Active Substance: METHYLPREDNISOLONE SODIUM SUCCINATE
     Dosage: 0.50 MG/KG, CYCLIC
     Route: 041
     Dates: start: 20170408, end: 20170408
  78. CYTARABINE SANDOZ [Suspect]
     Active Substance: CYTARABINE
     Indication: BURKITT^S LYMPHOMA STAGE IV
     Dosage: 50 MG/M2, CYCLIC
     Route: 041
     Dates: start: 20170306, end: 20170306
  79. CYTARABINE SANDOZ [Suspect]
     Active Substance: CYTARABINE
     Dosage: 50 MG/M2, CYCLIC
     Route: 041
     Dates: start: 20170310, end: 20170310
  80. CYTARABINE SANDOZ [Suspect]
     Active Substance: CYTARABINE
     Dosage: 3000 MG/M2, CYCLIC (DAY 2 AND DAY 5)
     Route: 041
     Dates: start: 20170411, end: 20170411

REACTIONS (2)
  - Paraesthesia [Not Recovered/Not Resolved]
  - Axonal neuropathy [Not Recovered/Not Resolved]

NARRATIVE: CASE EVENT DATE: 201703
